FAERS Safety Report 9380419 (Version 3)
Quarter: 2013Q3

REPORT INFORMATION
  Report Type: Spontaneous
  Country: US (occurrence: None)
  Receive Date: 20130628
  Receipt Date: 20130906
  Transmission Date: 20140515
  Serious: Yes (Hospitalization)
  Sender: FDA-Public Use
  Company Number: 148865

PATIENT
  Age: 61 Year
  Sex: Female
  Weight: 126 kg

DRUGS (1)
  1. LEUCOVORIN CALCIUM FOR INJ. 50MG - BEDFORD LABS, INC. [Suspect]
     Indication: OESOPHAGEAL CARCINOMA
     Route: 042
     Dates: start: 20120313, end: 20120505

REACTIONS (5)
  - Hypotension [None]
  - Dehydration [None]
  - Disease progression [None]
  - Blood pressure systolic decreased [None]
  - Haemoglobin decreased [None]
